FAERS Safety Report 24842018 (Version 1)
Quarter: 2025Q1

REPORT INFORMATION
  Report Type: Report from Study
  Country: US (occurrence: US)
  Receive Date: 20250114
  Receipt Date: 20250114
  Transmission Date: 20250409
  Serious: Yes (Hospitalization)
  Sender: ABBVIE
  Company Number: US-ABBVIE-6049931

PATIENT
  Age: 46 Year
  Sex: Male
  Weight: 68 kg

DRUGS (2)
  1. SKYRIZI [Suspect]
     Active Substance: RISANKIZUMAB-RZAA
     Indication: Crohn^s disease
     Route: 058
     Dates: start: 20230915, end: 20241130
  2. SKYRIZI [Suspect]
     Active Substance: RISANKIZUMAB-RZAA
     Route: 058
     Dates: start: 202412

REACTIONS (12)
  - Crohn^s disease [Not Recovered/Not Resolved]
  - Dehydration [Recovered/Resolved]
  - Device defective [Not Recovered/Not Resolved]
  - Enteritis [Not Recovered/Not Resolved]
  - Nausea [Recovered/Resolved]
  - Blood sodium decreased [Unknown]
  - Blood potassium decreased [Unknown]
  - Vitamin D decreased [Unknown]
  - Cholelithiasis [Unknown]
  - Stenosis [Unknown]
  - Large intestine infection [Not Recovered/Not Resolved]
  - Enteritis infectious [Not Recovered/Not Resolved]

NARRATIVE: CASE EVENT DATE: 20241101
